FAERS Safety Report 8052887-1 (Version None)
Quarter: 2012Q1

REPORT INFORMATION
  Report Type: 
  Country: None (occurrence: None)
  Receive Date: 20120118
  Receipt Date: 20120112
  Transmission Date: 20120608
  Serious: Yes (Hospitalization, Other)
  Sender: FDA-Public Use
  Company Number: US-JNJFOC-20100901283

PATIENT
  Sex: Female

DRUGS (2)
  1. LEVAQUIN [Suspect]
     Indication: PNEUMONIA
     Route: 042
  2. LEVAQUIN [Suspect]
     Indication: ILL-DEFINED DISORDER
     Route: 048
     Dates: start: 20090201

REACTIONS (14)
  - PRURITUS [None]
  - SKIN EXFOLIATION [None]
  - TOXIC EPIDERMAL NECROLYSIS [None]
  - THERMAL BURN [None]
  - HYPERSENSITIVITY [None]
  - STEVENS-JOHNSON SYNDROME [None]
  - MULTI-ORGAN DISORDER [None]
  - SWELLING [None]
  - VISUAL IMPAIRMENT [None]
  - INFECTION [None]
  - RASH [None]
  - ERYTHEMA [None]
  - SKIN DISCOLOURATION [None]
  - SCAR [None]
